FAERS Safety Report 5678425-6 (Version None)
Quarter: 2008Q1

REPORT INFORMATION
  Report Type: 
  Country: None (occurrence: None)
  Receive Date: 20080321
  Receipt Date: 20080313
  Transmission Date: 20080703
  Serious: Yes (Hospitalization)
  Sender: FDA-Public Use
  Company Number: 14114789

PATIENT

DRUGS (1)
  1. EMSAM [Suspect]
     Dosage: TD
     Route: 062

REACTIONS (2)
  - CONFUSIONAL STATE [None]
  - DELIRIUM [None]
